FAERS Safety Report 23481258 (Version 1)
Quarter: 2024Q1

REPORT INFORMATION
  Report Type: Spontaneous
  Country: US (occurrence: None)
  Receive Date: 20240202
  Receipt Date: 20240202
  Transmission Date: 20240409
  Serious: No
  Sender: FDA-Public Use
  Company Number: None

PATIENT
  Sex: 0

DRUGS (2)
  1. REMERON [Suspect]
     Active Substance: MIRTAZAPINE
  2. REMERON [Suspect]
     Active Substance: MIRTAZAPINE

REACTIONS (1)
  - Drug ineffective [None]
